FAERS Safety Report 18780770 (Version 1)
Quarter: 2021Q1

REPORT INFORMATION
  Report Type: Spontaneous
  Country: US (occurrence: US)
  Receive Date: 20210123
  Receipt Date: 20210123
  Transmission Date: 20210419
  Serious: Yes (Other)
  Sender: FDA-Public Use
  Company Number: None

PATIENT
  Age: 84 Year
  Sex: Male
  Weight: 87.09 kg

DRUGS (21)
  1. VITAMIN B12 [Concomitant]
     Active Substance: CYANOCOBALAMIN
  2. COENZYME Q10 [Concomitant]
     Active Substance: DIETARY SUPPLEMENT\UBIDECARENONE
  3. FEXOFENADINE 60MG [Concomitant]
     Active Substance: FEXOFENADINE HYDROCHLORIDE
  4. PRALUENT [Suspect]
     Active Substance: ALIROCUMAB
     Indication: ARTERIOSCLEROSIS
     Route: 058
     Dates: start: 20190219, end: 20210112
  5. OLMESARTAN 5MG [Concomitant]
  6. OXYMETAZOLINE 0.05 NASAL SPRAY [Concomitant]
  7. ASPIRIN 81MG [Concomitant]
     Active Substance: ASPIRIN
  8. DIPHENHYDRAMINE 25MG [Concomitant]
     Active Substance: DIPHENHYDRAMINE
  9. EPIPEN [Concomitant]
     Active Substance: EPINEPHRINE
  10. ALLOPURINOL 300MG [Concomitant]
     Active Substance: ALLOPURINOL
  11. ACETAMINOPHEN 500 [Concomitant]
  12. EZETIMIBE 10MG [Concomitant]
     Active Substance: EZETIMIBE
  13. GABAPENTIN 100MG [Concomitant]
     Active Substance: GABAPENTIN
  14. IPRATROPIUM 0.03 NASAL SPRAY [Concomitant]
  15. AZELASTINE 137MCG SPRAY [Concomitant]
  16. CHOLECALCIFEROL 5,000 IUS [Concomitant]
  17. MAGNESIUM OXIDE 400MG [Concomitant]
     Active Substance: MAGNESIUM OXIDE
  18. OMEPRAZOLE 40MG [Concomitant]
     Active Substance: OMEPRAZOLE
  19. PRALUENT [Suspect]
     Active Substance: ALIROCUMAB
     Indication: HYPERCHOLESTEROLAEMIA
     Route: 058
     Dates: start: 20190219, end: 20210112
  20. INDOMETHACIN 75MG [Concomitant]
  21. NITROGLYCERIN 0.4MG [Concomitant]

REACTIONS (2)
  - Muscular weakness [None]
  - Pruritus [None]

NARRATIVE: CASE EVENT DATE: 20210112
